FAERS Safety Report 11585247 (Version 1)
Quarter: 2015Q4

REPORT INFORMATION
  Report Type: Spontaneous
  Country: US (occurrence: US)
  Receive Date: 20151001
  Receipt Date: 20151001
  Transmission Date: 20160304
  Serious: Yes (Hospitalization)
  Sender: FDA-Public Use
  Company Number: US-SA-2015SA149923

PATIENT
  Sex: Male
  Weight: 81.7 kg

DRUGS (16)
  1. ELIQUIS [Concomitant]
     Active Substance: APIXABAN
     Indication: ATRIAL FIBRILLATION
     Route: 048
     Dates: start: 20150904, end: 20150910
  2. TADALAFIL [Concomitant]
     Active Substance: TADALAFIL
     Dates: start: 20141015
  3. NEXIUM [Concomitant]
     Active Substance: ESOMEPRAZOLE MAGNESIUM
     Dates: start: 20120211, end: 20140225
  4. PLAVIX [Suspect]
     Active Substance: CLOPIDOGREL BISULFATE
     Route: 048
     Dates: start: 200806, end: 20150909
  5. IBUPROFEN. [Concomitant]
     Active Substance: IBUPROFEN
     Dates: start: 201404
  6. RAMIPRIL. [Concomitant]
     Active Substance: RAMIPRIL
     Dates: start: 200806
  7. ASPIRIN. [Concomitant]
     Active Substance: ASPIRIN
     Dates: start: 2008
  8. ATORVASTATIN [Concomitant]
     Active Substance: ATORVASTATIN
     Dates: start: 200806
  9. HYDROCHLOROTHIAZIDE. [Concomitant]
     Active Substance: HYDROCHLOROTHIAZIDE
     Dates: start: 200806
  10. CARVEDILOL. [Concomitant]
     Active Substance: CARVEDILOL
     Dates: start: 200806
  11. NIASPAN [Concomitant]
     Active Substance: NIACIN
     Dates: start: 201101
  12. NITROGLYCERINE [Concomitant]
     Active Substance: NITROGLYCERIN
     Dates: start: 20141015
  13. VITAMIN D3 [Concomitant]
     Active Substance: CHOLECALCIFEROL
     Dates: start: 201101
  14. COENZYME Q10 [Concomitant]
     Active Substance: UBIDECARENONE
     Dates: start: 201012
  15. MAGNESIUM [Concomitant]
     Active Substance: MAGNESIUM
     Dates: start: 201006
  16. AMLODIPINE [Concomitant]
     Active Substance: AMLODIPINE BESYLATE
     Dates: start: 200806

REACTIONS (1)
  - Hemiparesis [Unknown]
